FAERS Safety Report 9315410 (Version 2)
Quarter: 2013Q3

REPORT INFORMATION
  Report Type: Report from Study
  Country: US (occurrence: US)
  Receive Date: 20130529
  Receipt Date: 20130827
  Transmission Date: 20140515
  Serious: Yes (Hospitalization, Other)
  Sender: FDA-Public Use
  Company Number: US-ABBOTT-13P-163-1093315-00

PATIENT
  Age: 51 Year
  Sex: Female
  Weight: 62.2 kg

DRUGS (3)
  1. HUMIRA [Suspect]
     Indication: CROHN^S DISEASE
     Dates: start: 201210
  2. AZATHIOPRINE [Suspect]
     Indication: CROHN^S DISEASE
  3. UNKNOWN MEDICATIONS [Concomitant]
     Indication: PRODUCT USED FOR UNKNOWN INDICATION

REACTIONS (5)
  - Peripheral embolism [Recovering/Resolving]
  - Crohn^s disease [Recovering/Resolving]
  - Rectal haemorrhage [Unknown]
  - Drug effect decreased [Unknown]
  - Drug resistance [Unknown]
